FAERS Safety Report 11343615 (Version 1)
Quarter: 2015Q3

REPORT INFORMATION
  Report Type: Spontaneous
  Country: JP (occurrence: None)
  Receive Date: 20150804
  Receipt Date: 20150804
  Transmission Date: 20151125
  Serious: Yes (Hospitalization)
  Sender: FDA-Public Use
  Company Number: ABR_02313_2015

PATIENT
  Sex: Male

DRUGS (1)
  1. GLIADEL [Suspect]
     Active Substance: CARMUSTINE
     Indication: MALIGNANT GLIOMA
     Dosage: TOTAL DOSE NOT PROVIDED
     Dates: start: 20150702, end: 20150709

REACTIONS (1)
  - Subdural hygroma [None]

NARRATIVE: CASE EVENT DATE: 20150709
